FAERS Safety Report 6100157-0 (Version None)
Quarter: 2009Q1

REPORT INFORMATION
  Report Type: 
  Country: None (occurrence: None)
  Receive Date: 20090303
  Receipt Date: 20090224
  Transmission Date: 20090719
  Serious: Yes (Hospitalization)
  Sender: FDA-Public Use
  Company Number: US-BAYER-200837502NA

PATIENT
  Age: 51 Year
  Sex: Male
  Weight: 136 kg

DRUGS (8)
  1. CAMPATH [Suspect]
     Indication: SECONDARY PROGRESSIVE MULTIPLE SCLEROSIS
     Dates: start: 20070301
  2. CAMPATH [Suspect]
     Dates: start: 20080601, end: 20080601
  3. HYDROXYZINE [Concomitant]
  4. DIOVAN [Concomitant]
  5. SOLU-MEDROL [Concomitant]
     Route: 042
     Dates: start: 20070301
  6. DIPHENHYDRAMINE HCL [Concomitant]
  7. ACETAMINOPHEN [Concomitant]
  8. MEPERIDINE HCL [Concomitant]

REACTIONS (1)
  - ANGIOEDEMA [None]
